FAERS Safety Report 15536413 (Version 1)
Quarter: 2018Q4

REPORT INFORMATION
  Report Type: Spontaneous
  Country: DE (occurrence: DE)
  Receive Date: 20181022
  Receipt Date: 20181022
  Transmission Date: 20190205
  Serious: Yes (Life-Threatening, Other)
  Sender: FDA-Public Use
  Company Number: DE-SA-2018SA289605

PATIENT
  Age: 76 Year
  Sex: Male
  Weight: 78 kg

DRUGS (2)
  1. FERRLECIT [Suspect]
     Active Substance: SODIUM FERRIC GLUCONATE COMPLEX
     Dosage: 62,5MG IN 250ML NACL
     Route: 042
     Dates: start: 20180929, end: 20180929
  2. SALINE [SODIUM CHLORIDE] [Concomitant]
     Active Substance: SODIUM CHLORIDE
     Dosage: 250 ML, UNK
     Dates: start: 20180929, end: 20180929

REACTIONS (8)
  - Chills [Unknown]
  - Body temperature increased [Unknown]
  - Dyspnoea [Unknown]
  - Malaise [Unknown]
  - Dry mouth [Unknown]
  - Bacterial sepsis [Recovering/Resolving]
  - Atrial fibrillation [Unknown]
  - Hypertension [Unknown]

NARRATIVE: CASE EVENT DATE: 20180929
